FAERS Safety Report 4348385-9 (Version None)
Quarter: 2004Q1

REPORT INFORMATION
  Report Type: 
  Country: None (occurrence: None)
  Receive Date: 20040325
  Receipt Date: 20040204
  Transmission Date: 20041129
  Serious: No
  Sender: FDA-Public Use
  Company Number: USA031050326

PATIENT
  Age: 53 Year
  Sex: Female
  Weight: 53 kg

DRUGS (4)
  1. FORTEO [Suspect]
     Indication: OSTEOPOROSIS
     Dosage: 20 UG/DAY
     Dates: start: 20030730
  2. MULTIVITAMIN [Concomitant]
  3. ACTIQ [Concomitant]
  4. NORCO [Concomitant]

REACTIONS (2)
  - BONE PAIN [None]
  - BREAST MASS [None]
